FAERS Safety Report 4976995-4 (Version None)
Quarter: 2006Q2

REPORT INFORMATION
  Report Type: 
  Country: None (occurrence: None)
  Receive Date: 20060412
  Receipt Date: 20060403
  Transmission Date: 20061013
  Serious: No
  Sender: FDA-Public Use
  Company Number: 06H-163-0307005-00

PATIENT
  Age: 20 Month
  Sex: Male

DRUGS (2)
  1. KETAMINE HCL [Suspect]
     Indication: SEDATION
     Dosage: 3 MG/KG, ONCE, INTRAMUSCULAR
     Route: 030
     Dates: start: 20060331, end: 20060331
  2. ATROPINE [Concomitant]

REACTIONS (5)
  - EYE SWELLING [None]
  - HYPERSENSITIVITY [None]
  - LOCAL SWELLING [None]
  - RASH [None]
  - SWELLING FACE [None]
